FAERS Safety Report 20345162 (Version 1)
Quarter: 2022Q1

REPORT INFORMATION
  Report Type: Spontaneous
  Country: FR (occurrence: FR)
  Receive Date: 20220118
  Receipt Date: 20220118
  Transmission Date: 20220423
  Serious: Yes (Congenital Anomaly, Other)
  Sender: FDA-Public Use
  Company Number: FR-ABBVIE-22K-056-4237482-00

PATIENT
  Sex: Male
  Weight: 3.08 kg

DRUGS (1)
  1. VALPROATE SODIUM [Suspect]
     Active Substance: VALPROATE SODIUM
     Indication: Maternal exposure timing unspecified
     Route: 064

REACTIONS (30)
  - Psychomotor skills impaired [Not Recovered/Not Resolved]
  - Communication disorder [Not Recovered/Not Resolved]
  - Executive dysfunction [Not Recovered/Not Resolved]
  - Cryptorchism [Unknown]
  - Torticollis [Unknown]
  - Respiratory disorder [Unknown]
  - Cryptorchism [Unknown]
  - Temporal lobe epilepsy [Unknown]
  - Language disorder [Unknown]
  - Social problem [Unknown]
  - Crying [Unknown]
  - Muscle rigidity [Unknown]
  - Emotional disorder [Unknown]
  - Sleep disorder [Unknown]
  - Speech disorder developmental [Unknown]
  - Gait disturbance [Unknown]
  - Autism spectrum disorder [Unknown]
  - Behaviour disorder [Unknown]
  - Memory impairment [Unknown]
  - Hyperacusis [Unknown]
  - Motor developmental delay [Unknown]
  - Balance disorder [Unknown]
  - Coordination abnormal [Unknown]
  - Dysgraphia [Unknown]
  - Learning disorder [Not Recovered/Not Resolved]
  - Autism spectrum disorder [Unknown]
  - Hypospadias [Recovered/Resolved]
  - Epilepsy [Unknown]
  - Anxiety [Not Recovered/Not Resolved]
  - Foetal exposure during pregnancy [Unknown]
